FAERS Safety Report 7676582-3 (Version None)
Quarter: 2011Q3

REPORT INFORMATION
  Report Type: 
  Country: None (occurrence: None)
  Receive Date: 20110809
  Receipt Date: 20110809
  Transmission Date: 20111222
  Serious: Yes (Hospitalization)
  Sender: FDA-Public Use
  Company Number: None

PATIENT

DRUGS (1)
  1. PREDNISONE [Suspect]
     Indication: RHEUMATOID ARTHRITIS
     Dosage: 5MG EVERY DAY PO
     Route: 048
     Dates: start: 20110506, end: 20110525

REACTIONS (10)
  - PSYCHOTIC DISORDER [None]
  - AGGRESSION [None]
  - DELUSION [None]
  - MENTAL STATUS CHANGES [None]
  - HALLUCINATION [None]
  - RESPIRATORY DEPRESSION [None]
  - HYPOTENSION [None]
  - AGITATION [None]
  - PYREXIA [None]
  - DELIRIUM [None]
